FAERS Safety Report 6605113-1 (Version None)
Quarter: 2010Q1

REPORT INFORMATION
  Report Type: 
  Country: None (occurrence: None)
  Receive Date: 20100226
  Receipt Date: 20100217
  Transmission Date: 20100710
  Serious: Yes (Hospitalization)
  Sender: FDA-Public Use
  Company Number: JP-ELI_LILLY_AND_COMPANY-JP201002005636

PATIENT
  Age: 72 Year
  Sex: Male

DRUGS (3)
  1. HUMALOG [Suspect]
     Indication: DIABETES MELLITUS
     Dosage: 40 IU, DAILY (1/D)
     Route: 058
     Dates: start: 20080701
  2. NOVORAPID [Concomitant]
     Indication: DIABETES MELLITUS
     Dosage: UNK, UNK
     Route: 058
     Dates: start: 20060101, end: 20080701
  3. MIGLITOL [Concomitant]
     Indication: DIABETES MELLITUS
     Dosage: 150 MG, DAILY (1/D)
     Route: 048
     Dates: start: 20080701

REACTIONS (4)
  - ANTI-INSULIN ANTIBODY POSITIVE [None]
  - DIABETES MELLITUS INADEQUATE CONTROL [None]
  - DRUG HYPERSENSITIVITY [None]
  - HYPOGLYCAEMIA [None]
